FAERS Safety Report 4657776-8 (Version None)
Quarter: 2005Q2

REPORT INFORMATION
  Report Type: 
  Country: None (occurrence: None)
  Receive Date: 20050510
  Receipt Date: 20050428
  Transmission Date: 20051028
  Serious: Yes (Hospitalization)
  Sender: FDA-Public Use
  Company Number: PHEH2005US04930

PATIENT
  Age: 74 Year
  Sex: Female

DRUGS (5)
  1. ALPRAZOLAM [Concomitant]
     Indication: ANXIETY
  2. TRAMADOL [Concomitant]
  3. SIMVASTATIN [Concomitant]
  4. ESTRADERM [Suspect]
     Indication: HORMONE REPLACEMENT THERAPY
     Dosage: 0.05MG, TWICE WEEKLY
     Route: 062
     Dates: end: 20050429
  5. NSAID'S [Concomitant]

REACTIONS (1)
  - KNEE ARTHROPLASTY [None]
